FAERS Safety Report 7768599-5 (Version None)
Quarter: 2011Q3

REPORT INFORMATION
  Report Type: 
  Country: None (occurrence: None)
  Receive Date: 20110920
  Receipt Date: 20110905
  Transmission Date: 20111222
  Serious: Yes (Other)
  Sender: FDA-Public Use
  Company Number: FR-ACCORD-010580

PATIENT
  Age: 17 Year
  Sex: Female

DRUGS (4)
  1. NOVANTRONE [Suspect]
     Indication: PRODUCT USED FOR UNKNOWN INDICATION
  2. IFOSFAMIDE [Suspect]
     Indication: PRODUCT USED FOR UNKNOWN INDICATION
  3. MESNA [Suspect]
     Indication: PRODUCT USED FOR UNKNOWN INDICATION
  4. ETOPOSIDE [Suspect]
     Indication: PRODUCT USED FOR UNKNOWN INDICATION

REACTIONS (6)
  - CAPILLARY LEAK SYNDROME [None]
  - PAIN [None]
  - OEDEMA PERIPHERAL [None]
  - MUCOSAL INFLAMMATION [None]
  - TOXICITY TO VARIOUS AGENTS [None]
  - PANNICULITIS [None]
